FAERS Safety Report 7601209-6 (Version None)
Quarter: 2011Q3

REPORT INFORMATION
  Report Type: 
  Country: None (occurrence: None)
  Receive Date: 20110711
  Receipt Date: 20110706
  Transmission Date: 20111222
  Serious: Yes (Hospitalization)
  Sender: FDA-Public Use
  Company Number: US-VIIV HEALTHCARE LIMITED-B0730627A

PATIENT
  Age: 58 Year
  Sex: Female
  Weight: 75.9 kg

DRUGS (20)
  1. ASPIRIN [Concomitant]
     Dates: start: 20080902
  2. DARUNAVIR ETHANOLATE [Concomitant]
     Indication: HIV INFECTION
     Dosage: 1200MG PER DAY
     Dates: start: 20100616
  3. RITONAVIR [Concomitant]
     Indication: HIV INFECTION
     Dosage: 200MG PER DAY
     Dates: start: 20100616
  4. METFORMIN HCL [Concomitant]
     Dates: start: 20080902
  5. LEVOTHROID [Concomitant]
     Dates: start: 20090918
  6. LISINOPRIL [Concomitant]
     Dates: start: 20090804
  7. DRISDOL [Concomitant]
     Dates: start: 20101108
  8. RALTEGRAVIR [Concomitant]
     Indication: HIV INFECTION
     Dosage: 800MG PER DAY
     Dates: start: 20100616
  9. NASONEX [Concomitant]
     Dates: start: 20090804
  10. MULTI-VITAMINS [Concomitant]
     Dates: start: 20080902
  11. PROPRANOLOL HYDROCHLORIDE [Concomitant]
     Dates: start: 20080902
  12. ZETIA [Concomitant]
     Dates: start: 20080902
  13. KLOR-CON [Concomitant]
     Dates: start: 20090918
  14. NORVASC [Concomitant]
     Dates: start: 20080902
  15. JANUVIA [Concomitant]
     Dates: start: 20101105
  16. ALDACTONE [Concomitant]
     Dates: start: 20091117
  17. MARAVIROC [Suspect]
     Indication: HIV INFECTION
     Dosage: 300MG PER DAY
     Dates: start: 20100616
  18. ADVAIR DISKUS 100/50 [Concomitant]
     Dates: start: 20080311
  19. LIPITOR [Concomitant]
     Dates: start: 20100402
  20. DIOVAN [Concomitant]
     Dates: start: 20091117

REACTIONS (1)
  - PNEUMONIA [None]
